FAERS Safety Report 9656522 (Version 1)
Quarter: 2013Q4

REPORT INFORMATION
  Report Type: Spontaneous
  Country: US (occurrence: US)
  Receive Date: 20131030
  Receipt Date: 20131030
  Transmission Date: 20140711
  Serious: Yes (Other)
  Sender: FDA-Public Use
  Company Number: US-ASTRAZENECA-2013SE78394

PATIENT
  Sex: 0

DRUGS (2)
  1. CRESTOR [Suspect]
     Route: 048
     Dates: start: 2013, end: 2013
  2. GEMFIBRAZOLE [Concomitant]
     Dates: start: 2013, end: 2013

REACTIONS (1)
  - Rhabdomyolysis [Unknown]
